FAERS Safety Report 6699747-6 (Version None)
Quarter: 2010Q2

REPORT INFORMATION
  Report Type: 
  Country: None (occurrence: None)
  Receive Date: 20100427
  Receipt Date: 20100427
  Transmission Date: 20101027
  Serious: Yes (Other)
  Sender: FDA-Public Use
  Company Number: None

PATIENT
  Age: 71 Year
  Sex: Female
  Weight: 77.1115 kg

DRUGS (2)
  1. FLAGYL [Suspect]
     Indication: INFECTION
     Dosage: 2 BAGS/DAY INTRAVENOUS
     Route: 042
     Dates: start: 20100331
  2. FLAGYL [Suspect]
     Indication: PNEUMONIA
     Dosage: 2 BAGS/DAY INTRAVENOUS
     Route: 042
     Dates: start: 20100331

REACTIONS (2)
  - BACK PAIN [None]
  - CHEST PAIN [None]
